FAERS Safety Report 7583733-8 (Version None)
Quarter: 2011Q2

REPORT INFORMATION
  Report Type: 
  Country: None (occurrence: None)
  Receive Date: 20110630
  Receipt Date: 20110622
  Transmission Date: 20111010
  Serious: Yes (Other)
  Sender: FDA-Public Use
  Company Number: JP-ROCHE-784715

PATIENT
  Age: 72 Year
  Sex: Male

DRUGS (9)
  1. LEUCOVORIN CALCIUM [Concomitant]
     Dosage: UNCERTAIN DOSAGE AND SIX COURSES
     Route: 041
     Dates: start: 20090101, end: 20090101
  2. AVASTIN [Suspect]
     Indication: RECTOSIGMOID CANCER METASTATIC
     Dosage: NOTE: UNCERTAIN DOSAGE AND SIX COURSES + SEVEN COURSES
     Route: 041
     Dates: start: 20090101, end: 20090101
  3. OXALIPLATIN [Suspect]
     Indication: RECTOSIGMOID CANCER METASTATIC
     Dosage: NOTE: UNCERTAIN DOSAGE AND SIX COURSES
     Route: 041
     Dates: start: 20090101, end: 20090101
  4. FLUOROURACIL [Concomitant]
     Dosage: ROUTE INTRAVENOUS BOLUS
     Route: 040
     Dates: start: 20090101, end: 20090101
  5. FLUOROURACIL [Concomitant]
     Dosage: UNCERTAIN DOSAGE AND SIX COURSES
     Route: 041
     Dates: start: 20090101, end: 20090101
  6. FLUOROURACIL [Concomitant]
     Dosage: ROUTE INTRAVENOUS DRIP
     Route: 040
     Dates: start: 20090101, end: 20090101
  7. IRINOTECAN HCL [Concomitant]
     Dosage: NOTE: UNCERTAIN DOSAGE AND SEVEN COURSES
     Route: 041
     Dates: start: 20090101, end: 20090101
  8. LEUCOVORIN CALCIUM [Concomitant]
     Dosage: UNCERTAIN DOSAGE AND SEVEN COURSES
     Route: 041
     Dates: start: 20090101, end: 20090101
  9. FLUOROURACIL [Concomitant]
     Dosage: UNCERTAIN DOSAGE AND SEVEN COURSES
     Route: 041
     Dates: start: 20090101, end: 20090101

REACTIONS (1)
  - SPLENOMEGALY [None]
